FAERS Safety Report 8803828 (Version 2)
Quarter: 2012Q4

REPORT INFORMATION
  Report Type: 
  Country: US (occurrence: US)
  Receive Date: 20120924
  Receipt Date: 20121204
  Transmission Date: 20130627
  Serious: Yes (Hospitalization, Other)
  Sender: FDA-Public Use
  Company Number: US-009507513-1103USA00939

PATIENT

DRUGS (8)
  1. FOSAMAX [Suspect]
     Indication: OSTEOPOROSIS
     Dosage: 70 mg, qw
     Route: 048
     Dates: start: 20010731, end: 20081030
  2. ALENDRONATE SODIUM [Suspect]
     Indication: OSTEOPOROSIS
     Dosage: 70 mg, UNK
     Route: 048
     Dates: start: 20080223, end: 20081004
  3. VITAMINS (UNSPECIFIED) [Concomitant]
     Dosage: UNK
  4. CALCIUM (UNSPECIFIED) [Concomitant]
     Dosage: UNK
  5. VITAMIN D (UNSPECIFIED) [Concomitant]
     Dosage: UNK
  6. ASCORBIC ACID [Concomitant]
     Dosage: UNK
  7. FLEXERIL [Concomitant]
  8. SECTRAL [Concomitant]
     Dosage: UNK
     Dates: start: 1990

REACTIONS (21)
  - Spinal fracture [Unknown]
  - Femur fracture [Unknown]
  - Back pain [Unknown]
  - Internal fixation of fracture [Unknown]
  - Fall [Unknown]
  - Intervertebral disc degeneration [Unknown]
  - Spondylolisthesis [Unknown]
  - Carotid artery occlusion [Unknown]
  - Weight increased [Unknown]
  - Sleep disorder [Unknown]
  - Fatigue [Unknown]
  - Asthenia [Unknown]
  - Chest pain [Unknown]
  - Constipation [Unknown]
  - Vulvovaginal dryness [Unknown]
  - Increased tendency to bruise [Unknown]
  - Adverse event [Unknown]
  - Musculoskeletal stiffness [Unknown]
  - Rosacea [Unknown]
  - Constipation [Unknown]
  - Dizziness postural [Recovered/Resolved]
